FAERS Safety Report 20151020 (Version 1)
Quarter: 2021Q4

REPORT INFORMATION
  Report Type: Spontaneous
  Country: US (occurrence: None)
  Receive Date: 20211203
  Receipt Date: 20211203
  Transmission Date: 20220303
  Serious: No
  Sender: FDA-Public Use
  Company Number: None

PATIENT
  Age: 66 Year
  Sex: Male

DRUGS (17)
  1. AMBRISENTAN [Suspect]
     Active Substance: AMBRISENTAN
     Indication: Pulmonary arterial hypertension
     Dosage: FREQUENCY : DAILY;?
     Route: 048
     Dates: start: 20180115
  2. TADALAFIL [Concomitant]
     Active Substance: TADALAFIL
  3. ASPIRIN [Concomitant]
     Active Substance: ASPIRIN
  4. DEXTROMETHORPHAN\GUAIFENESIN [Concomitant]
     Active Substance: DEXTROMETHORPHAN\GUAIFENESIN
  5. albuterol neb soln [Concomitant]
  6. atrovent inhl soln [Concomitant]
  7. VITAMIN D2 [Concomitant]
     Active Substance: ERGOCALCIFEROL
  8. K-TAB [Concomitant]
     Active Substance: POTASSIUM CHLORIDE
  9. ATORVASTATIN [Concomitant]
     Active Substance: ATORVASTATIN
  10. CALCITRIOL [Concomitant]
     Active Substance: CALCITRIOL
  11. METOLAZONE [Concomitant]
     Active Substance: METOLAZONE
  12. FUROSEMIDE [Concomitant]
     Active Substance: FUROSEMIDE
  13. METOPROLOL [Concomitant]
     Active Substance: METOPROLOL
  14. LOSARTAN [Concomitant]
     Active Substance: LOSARTAN
  15. FLONASE [Concomitant]
     Active Substance: FLUTICASONE PROPIONATE
  16. COENZYME Q10 [Concomitant]
     Active Substance: DIETARY SUPPLEMENT\UBIDECARENONE
  17. FLAXSEED [Concomitant]
     Active Substance: FLAX SEED

REACTIONS (3)
  - Acute respiratory failure [None]
  - Chronic left ventricular failure [None]
  - Dyspnoea [None]

NARRATIVE: CASE EVENT DATE: 20211114
